FAERS Safety Report 7144395-7 (Version None)
Quarter: 2010Q4

REPORT INFORMATION
  Report Type: 
  Country: None (occurrence: None)
  Receive Date: 20101208
  Receipt Date: 20101102
  Transmission Date: 20110411
  Serious: No
  Sender: FDA-Public Use
  Company Number: US-BAYER-201023352BCC

PATIENT
  Sex: Female
  Weight: 66.818 kg

DRUGS (1)
  1. ASPIRIN [Suspect]
     Indication: ISCHAEMIC HEART DISEASE PROPHYLAXIS
     Route: 048

REACTIONS (2)
  - BLOOD URINE PRESENT [None]
  - GINGIVAL BLEEDING [None]
